FAERS Safety Report 9582596 (Version 1)
Quarter: 2013Q4

REPORT INFORMATION
  Report Type: Spontaneous
  Country: US (occurrence: US)
  Receive Date: 20131002
  Receipt Date: 20131002
  Transmission Date: 20140711
  Serious: No
  Sender: FDA-Public Use
  Company Number: US-AMGEN-USASP2013041643

PATIENT
  Age: 65 Year
  Sex: Female
  Weight: 61.68 kg

DRUGS (7)
  1. ENBREL [Suspect]
     Indication: PRODUCT USED FOR UNKNOWN INDICATION
     Dosage: 50 MG, QWK
     Route: 058
  2. FOSAMAX [Concomitant]
     Dosage: UNK
  3. PREDNISONE [Concomitant]
     Dosage: 1 MG, UNK
  4. CITRUCEL [Concomitant]
     Dosage: UNK
  5. ESTRADIOL [Concomitant]
     Dosage: 0.025 MG, UNK
  6. FISH OIL [Concomitant]
     Dosage: UNK
  7. CALCIUM + VITAMIN D [Concomitant]
     Dosage: UNK

REACTIONS (1)
  - Drug ineffective [Unknown]
